FAERS Safety Report 9159400 (Version 3)
Quarter: 2013Q2

REPORT INFORMATION
  Report Type: Spontaneous
  Country: US (occurrence: US)
  Receive Date: 20130313
  Receipt Date: 20130401
  Transmission Date: 20140414
  Serious: Yes (Hospitalization)
  Sender: FDA-Public Use
  Company Number: PHEH2013US005520

PATIENT
  Sex: Male

DRUGS (17)
  1. MYFORTIC [Suspect]
     Indication: RENAL TRANSPLANT
     Dosage: 720 MG, BID
     Route: 048
     Dates: start: 20080622
  2. NORCO [Concomitant]
     Dosage: 1 DF, (1- 2 TABLET EVERY 4 HOURS AS NEEDED)
     Route: 048
  3. LIPITOR [Concomitant]
     Dosage: 20 MG, QD
     Route: 048
  4. VITAMIN D3 [Concomitant]
     Dosage: 2000 IU, QD
     Route: 048
  5. LOMOTIL [Concomitant]
     Indication: DIARRHOEA
     Dosage: 1 DF, AS NEEDED
     Route: 048
  6. DOXYCYCLINE MONOHYDRATE [Concomitant]
     Dosage: 100 MG, BID FOR 14 DAYS
     Route: 048
  7. HYDROCORTISONE [Concomitant]
     Dosage: 5 MG, NIGHTLY AT BED TIME
     Route: 048
  8. HYDROCORTISONE [Concomitant]
     Dosage: 10 MG, QD
     Route: 048
  9. NOVOLOG [Concomitant]
     Dosage: UNK (SPECIAL INSTRUCTION BOLUS IS WITH MEAL, ALSO HAS A PUMP)
     Route: 058
  10. LACTULOSE [Concomitant]
     Dosage: 20 G, BID (10 G/15 ML AS NEEDED FOR 10 DAYS)
     Route: 048
  11. COZAAR [Concomitant]
     Dosage: 25 MG, QD
     Route: 048
  12. METOPROLOL [Concomitant]
     Dosage: 25 MG, QD
     Route: 048
  13. PRILOSEC [Concomitant]
     Dosage: 20 MG, QD
     Route: 048
  14. BACTRIM DS [Concomitant]
     Dosage: 1 DF, QD (EVERY MONDAY, WEDNESDAY AND FRIDAY)
     Route: 048
  15. PROGRAF [Concomitant]
     Dosage: 2 MG, BID FOR 30 DAYS (BRAND NAME MEDICALLY NECESSARY, TAKES AT 1100 AND 2300)
     Route: 048
  16. FLOMAX ^BOEHRINGER INGELHEIM^ [Concomitant]
     Dosage: 0.4 MG, QD
     Route: 048
  17. TESTOSTERONE CYPIONATE [Concomitant]
     Dosage: UNK (EVERY 4 WEEKS)
     Route: 030

REACTIONS (5)
  - Testicular necrosis [Unknown]
  - Angiopathy [Unknown]
  - Testicular infarction [Unknown]
  - Spermatozoa abnormal [Unknown]
  - Calcinosis [Unknown]
